FAERS Safety Report 13802113 (Version 4)
Quarter: 2017Q3

REPORT INFORMATION
  Report Type: Spontaneous
  Country: SG (occurrence: SG)
  Receive Date: 20170727
  Receipt Date: 20170907
  Transmission Date: 20171127
  Serious: Yes (Other)
  Sender: FDA-Public Use
  Company Number: SG-009507513-1707SGP010381

PATIENT

DRUGS (1)
  1. FOLLITROPIN BETA [Suspect]
     Active Substance: FOLLITROPIN
     Indication: ASSISTED FERTILISATION

REACTIONS (2)
  - Injury associated with device [Unknown]
  - Occupational exposure to product [Unknown]

NARRATIVE: CASE EVENT DATE: 20170721
